FAERS Safety Report 8764056 (Version 1)
Quarter: 2012Q4

REPORT INFORMATION
  Report Type: 
  Country: BR (occurrence: BR)
  Receive Date: 20120831
  Receipt Date: 20120831
  Transmission Date: 20130627
  Serious: Yes (Other)
  Sender: FDA-Public Use
  Company Number: BR-PFIZER INC-2012211435

PATIENT
  Age: 69 Year
  Sex: Female
  Weight: 60 kg

DRUGS (8)
  1. PIPERACILLIN, TAZOBACTAM [Suspect]
     Dosage: 9 g daily
     Dates: start: 20120401, end: 20120417
  2. SOLU-CORTEF [Concomitant]
     Dosage: twice daily
     Route: 042
  3. ANCORON [Concomitant]
     Dosage: 30 Gtt (nasogastric tube), 2x/day
     Route: 007
  4. VANCOCIN [Concomitant]
     Dosage: 1 g, daily
     Route: 042
  5. CANCIDAS [Concomitant]
     Dosage: 50 mg, 1x/day
     Route: 042
  6. MERONEM [Concomitant]
     Dosage: 500 mg, 2x/day
     Route: 042
  7. INSULIN LANTUS [Concomitant]
     Dosage: 15 IU, 1x/day
     Route: 058
  8. POLYMYXIN B [Concomitant]
     Dosage: 2500 IU, 2x/day
     Route: 042

REACTIONS (6)
  - Diabetes mellitus [Not Recovered/Not Resolved]
  - Cardiac failure [Not Recovered/Not Resolved]
  - Leukopenia [Unknown]
  - Hypertension [Not Recovered/Not Resolved]
  - Cardiac valve disease [Not Recovered/Not Resolved]
  - Varicose vein [Not Recovered/Not Resolved]
